FAERS Safety Report 16427504 (Version 1)
Quarter: 2019Q2

REPORT INFORMATION
  Report Type: Spontaneous
  Country: HR (occurrence: HR)
  Receive Date: 20190613
  Receipt Date: 20190613
  Transmission Date: 20190711
  Serious: Yes (Other)
  Sender: FDA-Public Use
  Company Number: HR-TEVA-2019-HR-1061847

PATIENT
  Age: 63 Year
  Sex: Female

DRUGS (7)
  1. ZIPANTOLA [Concomitant]
     Active Substance: PANTOPRAZOLE SODIUM
     Route: 065
  2. KALINOR [Concomitant]
     Route: 048
  3. SEVREDOL [Concomitant]
     Active Substance: MORPHINE
     Route: 048
  4. LASIX [Concomitant]
     Active Substance: FUROSEMIDE
     Route: 048
  5. NEBIVOLOL PLIVA [Concomitant]
     Active Substance: NEBIVOLOL HYDROCHLORIDE
     Route: 048
  6. LUPOCET [Concomitant]
     Route: 065
  7. ERLOTINIB ACTAVIS [Suspect]
     Active Substance: ERLOTINIB
     Indication: LUNG NEOPLASM MALIGNANT
     Dosage: 150 MILLIGRAM DAILY;
     Route: 048
     Dates: start: 20190315

REACTIONS (5)
  - Nausea [Unknown]
  - Chest pain [Unknown]
  - Decreased appetite [Unknown]
  - Blood creatinine increased [Unknown]
  - Vomiting [Unknown]

NARRATIVE: CASE EVENT DATE: 201903
